FAERS Safety Report 4536643-4 (Version None)
Quarter: 2004Q4

REPORT INFORMATION
  Report Type: 
  Country: None (occurrence: None)
  Receive Date: 20041217
  Receipt Date: 20041209
  Transmission Date: 20050328
  Serious: Yes (Hospitalization)
  Sender: FDA-Public Use
  Company Number: HQWYE893510DEC04

PATIENT
  Age: 18 Year
  Sex: Male
  Weight: 68.1 kg

DRUGS (5)
  1. EFFEXOR XR [Suspect]
     Indication: DEPRESSION
     Dosage: SEE IMAGE
     Route: 048
     Dates: end: 20041101
  2. EFFEXOR XR [Suspect]
     Indication: DISTURBANCE IN ATTENTION
     Dosage: SEE IMAGE
     Route: 048
     Dates: end: 20041101
  3. EFFEXOR XR [Suspect]
     Indication: DEPRESSION
     Dosage: SEE IMAGE
     Route: 048
     Dates: start: 20041101
  4. EFFEXOR XR [Suspect]
     Indication: DISTURBANCE IN ATTENTION
     Dosage: SEE IMAGE
     Route: 048
     Dates: start: 20041101
  5. KLONOPIN [Concomitant]

REACTIONS (3)
  - DRUG WITHDRAWAL SYNDROME [None]
  - MANIA [None]
  - PSYCHOTIC DISORDER [None]
